FAERS Safety Report 9117162 (Version 1)
Quarter: 2013Q1

REPORT INFORMATION
  Report Type: Spontaneous
  Country: IE (occurrence: IE)
  Receive Date: 20130225
  Receipt Date: 20130225
  Transmission Date: 20140127
  Serious: Yes (Hospitalization)
  Sender: FDA-Public Use
  Company Number: IE-JNJFOC-20130113372

PATIENT
  Age: 86 Year
  Sex: Female

DRUGS (5)
  1. XARELTO [Suspect]
     Indication: CEREBROVASCULAR ACCIDENT PROPHYLAXIS
     Route: 048
  2. XARELTO [Suspect]
     Indication: ATRIAL FIBRILLATION
     Route: 048
  3. ACETYLSALICYLIC ACID [Interacting]
     Indication: PRODUCT USED FOR UNKNOWN INDICATION
     Route: 065
  4. CLOPIDOGREL [Interacting]
     Indication: PRODUCT USED FOR UNKNOWN INDICATION
     Route: 065
  5. HEPARIN [Concomitant]
     Route: 042

REACTIONS (3)
  - Cerebral haemorrhage [Recovered/Resolved]
  - Extravasation [Unknown]
  - Drug interaction [Unknown]
